FAERS Safety Report 8678726 (Version 3)
Quarter: 2012Q4

REPORT INFORMATION
  Report Type: 
  Country: FR (occurrence: FR)
  Receive Date: 20120723
  Receipt Date: 20120928
  Transmission Date: 20130627
  Serious: Yes (Other)
  Sender: FDA-Public Use
  Company Number: FR-ABBOTT-12P-056-0955564-00

PATIENT
  Sex: Male
  Weight: 67 kg

DRUGS (3)
  1. HUMIRA 40 MG/ 0.8 ML PRE-FILLED SYRINGE [Suspect]
     Indication: ANKYLOSING SPONDYLITIS
     Dates: start: 20080828
  2. SALAZOPYRINE [Concomitant]
     Indication: ANKYLOSING SPONDYLITIS
     Dosage: Daily
  3. NSAI DRUG [Concomitant]
     Indication: ANKYLOSING SPONDYLITIS
     Dosage: Occasionally

REACTIONS (2)
  - Clavicle fracture [Recovering/Resolving]
  - Fracture delayed union [Recovering/Resolving]
